FAERS Safety Report 24784950 (Version 1)
Quarter: 2024Q4

REPORT INFORMATION
  Report Type: Spontaneous
  Country: GB (occurrence: GB)
  Receive Date: 20241228
  Receipt Date: 20241228
  Transmission Date: 20250115
  Serious: Yes (Hospitalization, Other)
  Sender: TEVA
  Company Number: GB-MHRA-MIDB-bac68659-b99b-46b9-9a8b-c3ac391ae458

PATIENT
  Age: 72 Year
  Sex: Male

DRUGS (18)
  1. PREDNISOLONE [Suspect]
     Active Substance: PREDNISOLONE
     Indication: Product used for unknown indication
     Dosage: ON REDUCING DOSE
     Route: 065
  2. PREDNISOLONE [Suspect]
     Active Substance: PREDNISOLONE
     Indication: Product used for unknown indication
     Dosage: REDUCING DOSE AS DIRECTED UNTIL RVIEW IN RHEMATOLOGY CLINIC
     Route: 065
  3. PREDNISOLONE [Suspect]
     Active Substance: PREDNISOLONE
     Indication: Product used for unknown indication
     Dosage: TIME INTERVAL: 0.08333333 DAYS: 5 MG TABLETS TAKE TWELVE TABLETS EVERY MORNING FOR 14 DAYS.
     Route: 065
  4. ACETAMINOPHEN [Concomitant]
     Active Substance: ACETAMINOPHEN
     Indication: Product used for unknown indication
     Dosage: 1G QDS PRN 14/7- TAKES PRN
     Route: 065
  5. ASPIRIN [Concomitant]
     Active Substance: ASPIRIN
     Indication: Product used for unknown indication
     Dosage: 75 MG DISPERSIBLE TABLETS ONE TO BE TAKEN EACH DAY
     Route: 065
  6. CITALOPRAM [Concomitant]
     Active Substance: CITALOPRAM
     Indication: Product used for unknown indication
     Dosage: 20 MG TABLETS ONE TO BE TAKEN DAILY
     Route: 065
  7. NYSTATIN [Concomitant]
     Active Substance: NYSTATIN
     Indication: Product used for unknown indication
     Dosage: 100,000 UNITS / ML ORAL SUSPENSION 1 ML TO BE DROPPED INTO THE MOUTH FOUR TIMES A DAY.
  8. RANOLAZINE [Concomitant]
     Active Substance: RANOLAZINE
     Indication: Product used for unknown indication
     Dosage: 375 MG MODIFIED-RELEASE TABLETS ONE TO BE TAKEN TWICE A DAY
     Route: 065
  9. GABAPENTIN [Concomitant]
     Active Substance: GABAPENTIN
     Indication: Product used for unknown indication
     Dosage: TIME INTERVAL: 0.33333333 DAYS: 300 MG CAPSULES ONE TO BE TAKEN THREE TIMES A DAY
     Route: 065
  10. ROSUVASTATIN [Concomitant]
     Active Substance: ROSUVASTATIN
     Indication: Product used for unknown indication
     Dosage: 5 MG TABLETS ONE TO BE TAKEN EACH DAY
     Route: 065
  11. NIFEDIPINE [Concomitant]
     Active Substance: NIFEDIPINE
     Indication: Product used for unknown indication
     Dosage: 30 MG CAPSULES ONE TO BE TAKEN EACH DAY
     Route: 065
  12. CALCIUM CARBONATE\CHOLECALCIFEROL [Concomitant]
     Active Substance: CALCIUM CARBONATE\CHOLECALCIFEROL
     Indication: Product used for unknown indication
     Dosage: CHEWABLE TABLETS TUTTI FRUTTI (PROSTRAKAN LTD)C,ONE TO BE TAKEN TWICE DAILY
     Route: 065
  13. FEXOFENADINE [Concomitant]
     Active Substance: FEXOFENADINE HYDROCHLORIDE
     Indication: Product used for unknown indication
     Dosage: 180 MG TABLETS ONE TO BE TAKEN TWICE DAILY AS ADVISED BY DERMATOLOGY
     Route: 065
  14. ALENDRONIC ACID [Concomitant]
     Active Substance: ALENDRONIC ACID
     Indication: Product used for unknown indication
     Dosage: 70 MG TABLETS ONE TO BE TAKEN WEEKLY
     Route: 065
  15. LANSOPRAZOLE [Concomitant]
     Active Substance: LANSOPRAZOLE
     Indication: Product used for unknown indication
     Dosage: 30 MG GASTRO-RESISTANT CAPSULES ONE TO BE TAKEN EACH MORNING
     Route: 065
  16. CARBOCYSTEINE [Concomitant]
     Active Substance: CARBOCYSTEINE
     Indication: Product used for unknown indication
     Dosage: TIME INTERVAL: 0.33333333 DAYS: 375 MG CAPSULES TWO TO BE TAKEN THREE TIMES A DAY
     Route: 065
  17. MORPHINE [Concomitant]
     Active Substance: MORPHINE
     Indication: Product used for unknown indication
     Dosage: 10MG/5ML ORAL SOLUTION TAKE 2.5MG EVERY 4 HOURS ( 6 HOURLY)
     Route: 065
  18. OMEPRAZOLE [Concomitant]
     Active Substance: OMEPRAZOLE
     Indication: Product used for unknown indication
     Dosage: 20 MG GASTRO-RESISTANT CAPSULES ONE TO BE TAKEN TWICE A DAY
     Route: 065

REACTIONS (1)
  - Orthostatic hypotension [Unknown]
